FAERS Safety Report 11787271 (Version 4)
Quarter: 2016Q4

REPORT INFORMATION
  Report Type: Report from Study
  Country: JP (occurrence: JP)
  Receive Date: 20151130
  Receipt Date: 20161030
  Transmission Date: 20170206
  Serious: Yes (Death, Other)
  Sender: FDA-Public Use
  Company Number: JP-ALEXION PHARMACEUTICALS INC-A201504619

PATIENT
  Age: 27 Year
  Sex: Female
  Weight: 51 kg

DRUGS (49)
  1. PICILLIBACTA [Concomitant]
     Active Substance: AMPICILLIN SODIUM\SULBACTAM SODIUM
     Indication: PNEUMONIA
  2. CALONAL [Concomitant]
     Active Substance: ACETAMINOPHEN
     Indication: STILL^S DISEASE ADULT ONSET
     Dosage: 400 MG, TID
     Route: 048
     Dates: start: 20151030, end: 20151030
  3. BIO-THREE [Concomitant]
     Active Substance: HERBALS
     Indication: PRODUCT USED FOR UNKNOWN INDICATION
     Dosage: 1 G, TID
     Route: 048
     Dates: end: 20151118
  4. PRIMPERAN [Concomitant]
     Active Substance: METOCLOPRAMIDE HYDROCHLORIDE
     Indication: PRODUCT USED FOR UNKNOWN INDICATION
     Dosage: 10 MG, DAILY
     Route: 042
     Dates: start: 20151107, end: 20151113
  5. SOLIRIS [Suspect]
     Active Substance: ECULIZUMAB
     Indication: HAEMOLYTIC URAEMIC SYNDROME
     Dosage: 900 MG, SINGLE
     Route: 042
     Dates: start: 20151116, end: 20151116
  6. PICILLIBACTA [Concomitant]
     Active Substance: AMPICILLIN SODIUM\SULBACTAM SODIUM
     Indication: INFECTION PROPHYLAXIS
     Dosage: 3 G, TID
     Route: 042
     Dates: start: 20151110, end: 20151116
  7. SERENACE [Concomitant]
     Active Substance: HALOPERIDOL
     Indication: PRODUCT USED FOR UNKNOWN INDICATION
     Dosage: 5 MG, DAILY
     Route: 042
     Dates: start: 20151106, end: 20151106
  8. ACELIO [Concomitant]
     Active Substance: ACETAMINOPHEN
     Indication: PRODUCT USED FOR UNKNOWN INDICATION
     Dosage: 500 MG, DAILY
     Route: 042
     Dates: start: 20151031, end: 20151031
  9. NOREPINEPHRINE [Concomitant]
     Active Substance: NOREPINEPHRINE\NOREPINEPHRINE BITARTRATE
     Indication: HAEMOLYTIC URAEMIC SYNDROME
     Dosage: 10 MG, SINGLE
     Route: 042
     Dates: start: 20151117, end: 20151117
  10. EDIROL [Concomitant]
     Active Substance: ELDECALCITOL
     Indication: PROPHYLAXIS
     Dosage: 0.75 ?G, QD
     Route: 048
     Dates: start: 20151103, end: 20151106
  11. BAKTAR [Concomitant]
     Active Substance: SULFAMETHOXAZOLE\TRIMETHOPRIM
     Dosage: 4 G, BID
     Route: 048
     Dates: start: 20151113, end: 20151113
  12. PREDONINE [Concomitant]
     Active Substance: PREDNISOLONE\PREDNISOLONE ACETATE\PREDNISOLONE SODIUM SUCCINATE
     Dosage: 20 MG, QD
     Route: 042
     Dates: start: 20151117, end: 20151117
  13. MIDAZOLAM [Concomitant]
     Active Substance: MIDAZOLAM\MIDAZOLAM HYDROCHLORIDE
     Indication: SEDATION
     Dosage: 120 MG, QD
     Route: 042
     Dates: start: 20151107, end: 20151117
  14. HUMALIN [Concomitant]
     Active Substance: INSULIN NOS
     Indication: PRODUCT USED FOR UNKNOWN INDICATION
     Dosage: 10 IU, DAILY
     Route: 042
     Dates: start: 20151110, end: 20151110
  15. HUMALIN [Concomitant]
     Active Substance: INSULIN NOS
     Dosage: 26 IU, UNK
     Route: 042
     Dates: start: 20151111, end: 20151111
  16. E KEPPRA [Concomitant]
     Active Substance: LEVETIRACETAM
     Indication: THROMBOTIC MICROANGIOPATHY
     Dosage: 1000 MG, BID
     Route: 048
     Dates: start: 20151108, end: 20151118
  17. E KEPPRA [Concomitant]
     Active Substance: LEVETIRACETAM
     Dosage: 2000 MG, BID
     Route: 048
     Dates: start: 20151114, end: 20151118
  18. PREDONINE [Concomitant]
     Active Substance: PREDNISOLONE\PREDNISOLONE ACETATE\PREDNISOLONE SODIUM SUCCINATE
     Dosage: 40 MG, BID
     Route: 042
     Dates: start: 20151107, end: 20151112
  19. PREDONINE [Concomitant]
     Active Substance: PREDNISOLONE\PREDNISOLONE ACETATE\PREDNISOLONE SODIUM SUCCINATE
     Dosage: 30 MG, UNK
     Route: 042
     Dates: start: 20151113, end: 20151116
  20. NOREPINEPHRINE [Concomitant]
     Active Substance: NOREPINEPHRINE\NOREPINEPHRINE BITARTRATE
     Indication: RESUSCITATION
     Dosage: 3 MG, DAILY
     Route: 042
     Dates: start: 20151107, end: 20151116
  21. FINIBAX [Concomitant]
     Active Substance: DORIPENEM MONOHYDRATE
     Indication: PNEUMONIA
     Dosage: 1 G, TID
     Route: 065
     Dates: start: 20151107, end: 20151108
  22. ZOSYN [Concomitant]
     Active Substance: PIPERACILLIN SODIUM\TAZOBACTAM SODIUM
     Indication: INFECTION PROPHYLAXIS
     Dosage: 2.25 G, QID
     Route: 042
     Dates: start: 20151116, end: 20151117
  23. OLOPATADINE [Concomitant]
     Active Substance: OLOPATADINE
     Indication: RHINITIS ALLERGIC
     Dosage: 10 MG, QD
     Route: 048
     Dates: start: 20151031, end: 20151106
  24. OLOPATADINE [Concomitant]
     Active Substance: OLOPATADINE
     Dosage: 10 MG, QD
     Route: 048
     Dates: start: 20151115, end: 20151118
  25. PREDNISOLONE. [Concomitant]
     Active Substance: PREDNISOLONE
     Indication: STILL^S DISEASE ADULT ONSET
     Dosage: 20 MG, QD
     Route: 048
     Dates: start: 20151102, end: 20151102
  26. TAKEPRON [Concomitant]
     Active Substance: LANSOPRAZOLE
     Indication: PRODUCT USED FOR UNKNOWN INDICATION
     Dosage: 30 MG, DAILY
     Route: 042
     Dates: start: 20151106, end: 20151106
  27. HUMALIN [Concomitant]
     Active Substance: INSULIN NOS
     Dosage: 36 IU, DAILY
     Route: 042
     Dates: start: 20151117, end: 20151117
  28. LEVOFLOXACIN. [Concomitant]
     Active Substance: LEVOFLOXACIN
     Indication: STILL^S DISEASE ADULT ONSET
     Dosage: UNK, QID
     Dates: start: 20151031, end: 20151031
  29. CELECOX [Concomitant]
     Active Substance: CELECOXIB
     Indication: STILL^S DISEASE ADULT ONSET
     Dosage: 100 MG, QD
     Route: 048
     Dates: start: 20151102, end: 20151102
  30. BAKTAR [Concomitant]
     Active Substance: SULFAMETHOXAZOLE\TRIMETHOPRIM
     Dosage: 4 G, BID
     Route: 048
     Dates: start: 20151116, end: 20151116
  31. DEPAKENE [Concomitant]
     Active Substance: VALPROIC ACID
     Indication: THROMBOTIC MICROANGIOPATHY
     Dosage: 400 MG, BID
     Route: 048
     Dates: start: 20151114, end: 20151117
  32. NAFAMOSTAT [Concomitant]
     Active Substance: NAFAMOSTAT
     Indication: CONTINUOUS HAEMODIAFILTRATION
     Dosage: 250 MG, QD
     Route: 058
     Dates: start: 20151107, end: 20151117
  33. FINIBAX [Concomitant]
     Active Substance: DORIPENEM MONOHYDRATE
     Indication: INFECTION PROPHYLAXIS
     Dosage: 0.5 G, TID
     Route: 065
     Dates: start: 20151106, end: 20151107
  34. ZOSYN [Concomitant]
     Active Substance: PIPERACILLIN SODIUM\TAZOBACTAM SODIUM
     Indication: PNEUMONIA
  35. FLUMETHOLON [Concomitant]
     Active Substance: FLUOROMETHOLONE
     Indication: STILL^S DISEASE ADULT ONSET
     Dosage: 1DROP, QID
     Dates: start: 20151031, end: 20151031
  36. ANTEBATE [Concomitant]
     Active Substance: BETAMETHASONE DIPROPIONATE
     Indication: STILL^S DISEASE ADULT ONSET
     Dosage: PROPER QUANTITY, BID
     Route: 062
     Dates: start: 20151031, end: 20151031
  37. RANTUDIL [Concomitant]
     Active Substance: ACEMETACIN
     Indication: STILL^S DISEASE ADULT ONSET
     Dosage: 30 MG, PRN
     Route: 048
     Dates: start: 20151031, end: 20151031
  38. BAKTAR [Concomitant]
     Active Substance: SULFAMETHOXAZOLE\TRIMETHOPRIM
     Indication: PROPHYLAXIS
     Dosage: 4 G, BID
     Route: 048
     Dates: start: 20151109, end: 20151109
  39. HIRUDOID                           /00723701/ [Concomitant]
     Active Substance: PENTOSAN POLYSULFATE SODIUM
     Indication: PRODUCT USED FOR UNKNOWN INDICATION
     Dosage: UNK, BID
     Route: 062
     Dates: start: 20151115
  40. TAKEPRON [Concomitant]
     Active Substance: LANSOPRAZOLE
     Dosage: 30 MG, DAILY
     Route: 042
     Dates: start: 20151110, end: 20151110
  41. FENTANYL. [Concomitant]
     Active Substance: FENTANYL
     Indication: RESPIRATORY SYMPTOM
     Dosage: 0.4 MG, DAILY
     Route: 042
     Dates: start: 20151107, end: 20151117
  42. CALCICOL [Concomitant]
     Active Substance: CALCIUM GLUCONATE
     Indication: PRODUCT USED FOR UNKNOWN INDICATION
     Dosage: 20 ML, DAILY
     Route: 042
     Dates: start: 20151107, end: 20151107
  43. HUMALIN [Concomitant]
     Active Substance: INSULIN NOS
     Dosage: 30 IU, DAILY
     Route: 042
     Dates: start: 20151112, end: 20151113
  44. PREDNISOLONE. [Concomitant]
     Active Substance: PREDNISOLONE
     Dosage: 60 MG, TID
     Route: 048
     Dates: start: 20151103, end: 20151106
  45. LANSOPRAZOLE. [Concomitant]
     Active Substance: LANSOPRAZOLE
     Indication: PROPHYLAXIS
     Dosage: 15 MG, QD
     Route: 048
     Dates: start: 20151102, end: 20151118
  46. PREDONINE [Concomitant]
     Active Substance: PREDNISOLONE\PREDNISOLONE ACETATE\PREDNISOLONE SODIUM SUCCINATE
     Indication: THROMBOTIC MICROANGIOPATHY
     Dosage: 20 MG, QD
     Route: 042
     Dates: start: 20151106, end: 20151106
  47. PRECEDEX [Concomitant]
     Active Substance: DEXMEDETOMIDINE HYDROCHLORIDE
     Indication: RESPIRATORY SYMPTOM
     Dosage: 400 ?G, QD
     Route: 042
     Dates: start: 20151107, end: 20151109
  48. CALCICOL [Concomitant]
     Active Substance: CALCIUM GLUCONATE
     Dosage: 20 ML, DAILY
     Route: 042
     Dates: start: 20151109, end: 20151109
  49. HORIZON [Concomitant]
     Active Substance: DIAZEPAM
     Indication: PRODUCT USED FOR UNKNOWN INDICATION
     Dosage: 10 MG, DAILY
     Route: 042
     Dates: start: 20151113, end: 20151114

REACTIONS (2)
  - Condition aggravated [Fatal]
  - Haemolytic uraemic syndrome [Fatal]

NARRATIVE: CASE EVENT DATE: 20151117
